FAERS Safety Report 8836142 (Version 1)
Quarter: 2012Q4

REPORT INFORMATION
  Report Type: 
  Country: US (occurrence: US)
  Receive Date: 20121011
  Receipt Date: 20121011
  Transmission Date: 20130627
  Serious: No
  Sender: FDA-Public Use
  Company Number: US-009507513-1210USA004900

PATIENT
  Age: 23 Year
  Sex: Female

DRUGS (4)
  1. SAPHRIS [Suspect]
     Dosage: UNK
     Dates: start: 201209
  2. LITHIUM [Concomitant]
     Dosage: 300 mg, UNK
  3. LITHIUM [Concomitant]
     Dosage: 600 mg, UNK
  4. LAMICTAL [Concomitant]
     Dosage: 100 mg AM and 200 mg PM

REACTIONS (1)
  - Enuresis [Unknown]
